FAERS Safety Report 5199531-9 (Version None)
Quarter: 2006Q4

REPORT INFORMATION
  Report Type: 
  Country: None (occurrence: None)
  Receive Date: 20061229
  Receipt Date: 20061219
  Transmission Date: 20070319
  Serious: Yes (Other)
  Sender: FDA-Public Use
  Company Number: 2006SP008053

PATIENT
  Age: 62 Year
  Sex: Male

DRUGS (9)
  1. NITRO-DUR [Suspect]
     Indication: DRUG USE FOR UNKNOWN INDICATION
     Dosage: 0.4 MG; TDER; SEE IMAGE
     Route: 062
     Dates: start: 20061202
  2. NITRO-DUR [Suspect]
     Indication: DRUG USE FOR UNKNOWN INDICATION
     Dosage: 0.4 MG; TDER; SEE IMAGE
     Route: 062
     Dates: start: 20061209
  3. WARFARIN SODIUM [Concomitant]
  4. ACEBUTOLOL [Concomitant]
  5. TIAZAC [Concomitant]
  6. PREDNISONE TAB [Concomitant]
  7. EZETROL [Concomitant]
  8. ALTACE [Concomitant]
  9. INSULIN [Concomitant]

REACTIONS (1)
  - HALLUCINATION [None]
